FAERS Safety Report 8390641-1 (Version None)
Quarter: 2012Q2

REPORT INFORMATION
  Report Type: 
  Country: None (occurrence: None)
  Receive Date: 20120529
  Receipt Date: 20120518
  Transmission Date: 20120825
  Serious: Yes (Hospitalization)
  Sender: FDA-Public Use
  Company Number: FR-BRISTOL-MYERS SQUIBB COMPANY-16587339

PATIENT
  Age: 58 Year
  Sex: Male

DRUGS (17)
  1. CETUXIMAB [Suspect]
     Indication: HEAD AND NECK CANCER
     Dosage: X1 CYCLE
     Route: 042
     Dates: start: 20101102, end: 20101220
  2. MORPHINE SULFATE [Concomitant]
     Indication: MUCOSAL INFLAMMATION
     Dates: end: 20110219
  3. ACETAMINOPHEN [Concomitant]
     Indication: DYSPHAGIA
  4. ACETAMINOPHEN [Concomitant]
     Indication: PAIN
  5. CISPLATIN [Suspect]
     Indication: HEAD AND NECK CANCER
     Dosage: FIRST DAY OF 21 DAY CYCLE
     Route: 042
     Dates: start: 20100825, end: 20101007
  6. TERCIAN [Concomitant]
     Route: 048
  7. MORPHINE SULFATE [Concomitant]
  8. POTASSIUM CHLORIDE [Concomitant]
     Indication: HYPOKALAEMIA
  9. FLUOROURACIL [Suspect]
     Indication: HEAD AND NECK CANCER
     Dosage: FIRST 5 DAYS OF 21 DAY CYCLE
     Route: 042
     Dates: start: 20100825, end: 20101011
  10. MORPHINE SULFATE [Concomitant]
     Indication: DYSPHAGIA
     Dates: end: 20110219
  11. PANTOPRAZOLE SODIUM [Concomitant]
     Route: 048
  12. DOCETAXEL [Suspect]
     Indication: HEAD AND NECK CANCER
     Dosage: FIRST DAY OF 21 DAY CYCLE
     Route: 042
     Dates: start: 20100825, end: 20101007
  13. MORPHINE SULFATE [Concomitant]
     Indication: PAIN
     Dates: end: 20110219
  14. OXAZEPAM [Concomitant]
     Route: 048
  15. ALPRAZOLAM [Concomitant]
     Route: 048
  16. SULFARLEM [Concomitant]
     Dosage: 105MG
     Route: 048
  17. ACETAMINOPHEN [Concomitant]
     Indication: MUCOSAL INFLAMMATION

REACTIONS (4)
  - MUCOSAL INFLAMMATION [None]
  - DIARRHOEA [None]
  - DYSPHAGIA [None]
  - DEVICE RELATED INFECTION [None]
